FAERS Safety Report 9465865 (Version 2)
Quarter: 2013Q3

REPORT INFORMATION
  Report Type: Report from Study
  Country: GB (occurrence: GB)
  Receive Date: 20130820
  Receipt Date: 20130826
  Transmission Date: 20140515
  Serious: Yes (Hospitalization)
  Sender: FDA-Public Use
  Company Number: GB-ABBOTT-13P-167-1133631-00

PATIENT
  Age: 66 Year
  Sex: Female

DRUGS (1)
  1. HUMIRA [Suspect]
     Indication: RHEUMATOID ARTHRITIS
     Dosage: NOT KNOWN.
     Route: 050
     Dates: start: 201302

REACTIONS (2)
  - Hip arthroplasty [Recovering/Resolving]
  - Rheumatoid arthritis [Not Recovered/Not Resolved]
